FAERS Safety Report 15455202 (Version 2)
Quarter: 2018Q4

REPORT INFORMATION
  Report Type: Spontaneous
  Country: US (occurrence: US)
  Receive Date: 20181002
  Receipt Date: 20181203
  Transmission Date: 20190204
  Serious: No
  Sender: FDA-Public Use
  Company Number: US-BAUSCH-BL-2018-025579

PATIENT
  Age: 75 Year
  Sex: Female

DRUGS (1)
  1. ELIDEL [Suspect]
     Active Substance: PIMECROLIMUS
     Indication: DERMATITIS
     Dosage: INSTRUCTED TO APPLY A THIN LAYER OVER HER FACE TWICE DAILY FOR 2 TO 3 WEEKS.
     Route: 061
     Dates: start: 20180913

REACTIONS (2)
  - Drug effect incomplete [Not Recovered/Not Resolved]
  - No adverse event [Unknown]

NARRATIVE: CASE EVENT DATE: 20180913
